FAERS Safety Report 17811404 (Version 1)
Quarter: 2020Q2

REPORT INFORMATION
  Report Type: Spontaneous
  Country: US (occurrence: US)
  Receive Date: 20200521
  Receipt Date: 20200521
  Transmission Date: 20200714
  Serious: No
  Sender: FDA-Public Use
  Company Number: US-PFIZER INC-2020200225

PATIENT
  Age: 54 Year
  Sex: Female
  Weight: 74.39 kg

DRUGS (3)
  1. PREGABALIN. [Suspect]
     Active Substance: PREGABALIN
     Indication: SPINAL CORD INJURY
  2. PREGABALIN. [Suspect]
     Active Substance: PREGABALIN
     Indication: CERVICAL VERTEBRAL FRACTURE
  3. PREGABALIN. [Suspect]
     Active Substance: PREGABALIN
     Indication: ROAD TRAFFIC ACCIDENT
     Dosage: 100 MG
     Dates: start: 202001, end: 202001

REACTIONS (1)
  - Drug ineffective [Unknown]
